FAERS Safety Report 7888598-2 (Version None)
Quarter: 2011Q4

REPORT INFORMATION
  Report Type: 
  Country: None (occurrence: None)
  Receive Date: 20111103
  Receipt Date: 20111102
  Transmission Date: 20120403
  Serious: No
  Sender: FDA-Public Use
  Company Number: US-PFIZER INC-2011268603

PATIENT
  Sex: Male
  Weight: 92.971 kg

DRUGS (3)
  1. ASPIRIN+CAFFEINE [Concomitant]
     Indication: HEADACHE
     Dosage: UNK
  2. IBUPROFEN [Concomitant]
     Indication: HEADACHE
     Dosage: UNK
  3. CHANTIX [Suspect]
     Indication: SMOKING CESSATION THERAPY
     Dosage: 0.5 MG, 1X/DAY
     Route: 048
     Dates: start: 20111101

REACTIONS (3)
  - SOMNOLENCE [None]
  - HYPERSOMNIA [None]
  - FATIGUE [None]
